FAERS Safety Report 18287426 (Version 2)
Quarter: 2020Q3

REPORT INFORMATION
  Report Type: Report from Study
  Country: None (occurrence: LB)
  Receive Date: 20200921
  Receipt Date: 20200929
  Transmission Date: 20201103
  Serious: Yes (Hospitalization, Disabling)
  Sender: FDA-Public Use
  Company Number: LB-ABBVIE-20K-093-3574239-00

PATIENT
  Age: 27 Year
  Sex: Male
  Weight: 93 kg

DRUGS (4)
  1. HUMIRA [Suspect]
     Active Substance: ADALIMUMAB
     Route: 058
     Dates: start: 201605, end: 201905
  2. HUMIRA [Suspect]
     Active Substance: ADALIMUMAB
     Indication: CROHN^S DISEASE
     Route: 058
     Dates: start: 20190517, end: 202004
  3. HUMIRA [Suspect]
     Active Substance: ADALIMUMAB
     Indication: CROHN^S DISEASE
     Dosage: DOESN^T RECALL THE LOADING DOSE
     Route: 058
     Dates: start: 201604, end: 201604
  4. HUMIRA [Suspect]
     Active Substance: ADALIMUMAB
     Dosage: ONCE LOADING DOSE
     Route: 058
     Dates: start: 20200922, end: 20200922

REACTIONS (2)
  - Gait inability [Recovered/Resolved]
  - Pain [Recovered/Resolved]

NARRATIVE: CASE EVENT DATE: 20200916
